FAERS Safety Report 15620393 (Version 1)
Quarter: 2018Q4

REPORT INFORMATION
  Report Type: Spontaneous
  Country: US (occurrence: US)
  Receive Date: 20181115
  Receipt Date: 20181115
  Transmission Date: 20190205
  Serious: Yes (Other)
  Sender: FDA-Public Use
  Company Number: US-RECKITT BENCKISER HEALTHCARE INT LIMITED-RB-93375-2018

PATIENT
  Age: 27 Year
  Sex: Male

DRUGS (3)
  1. DEXTROMETHORPHAN HYDROBROMIDE GUAIFENESIN [Suspect]
     Active Substance: DEXTROMETHORPHAN HYDROBROMIDE\GUAIFENESIN
     Indication: PRODUCT USED FOR UNKNOWN INDICATION
     Dosage: UNK
     Route: 048
  2. METHAMPHETAMINE                    /00069101/ [Suspect]
     Active Substance: METHAMPHETAMINE
     Indication: BACK PAIN
     Dosage: UNK
     Route: 065
  3. ACETAMINOPHEN. [Suspect]
     Active Substance: ACETAMINOPHEN
     Indication: BACK PAIN
     Dosage: UNK
     Route: 065

REACTIONS (9)
  - Nystagmus [Unknown]
  - Drug abuse [Unknown]
  - Tachycardia [Recovered/Resolved]
  - Metabolic acidosis [Unknown]
  - Hyperchloraemia [Unknown]
  - Toxicity to various agents [Unknown]
  - Hepatic function abnormal [Not Recovered/Not Resolved]
  - Serotonin syndrome [Unknown]
  - Clonus [Recovered/Resolved]
